FAERS Safety Report 10625239 (Version 1)
Quarter: 2014Q4

REPORT INFORMATION
  Report Type: Spontaneous
  Country: US (occurrence: None)
  Receive Date: 20141202
  Receipt Date: 20141202
  Transmission Date: 20150529
  Serious: Yes (Life-Threatening)
  Sender: FDA-Public Use
  Company Number: 2640075

PATIENT
  Age: 71 Year
  Sex: Male
  Weight: 85 kg

DRUGS (5)
  1. GRANULOCYTE COLONY STIMULATING FACTOR) [Concomitant]
  2. CYTARABINE INJECTION (CYTARABINE) [Suspect]
     Active Substance: CYTARABINE
     Indication: ACUTE MYELOID LEUKAEMIA
     Dosage: 20 MG MILLIGRAM(S), CYCLICAL, SUBCUTANEOUS?
     Route: 058
     Dates: start: 20130731, end: 20130809
  3. CLADRIBINE. [Suspect]
     Active Substance: CLADRIBINE
     Indication: ACUTE MYELOID LEUKAEMIA
     Dosage: 10 MG MILLIGRAM(S), 1 DAY, INTRAVENOUS (NOT OTHERWISE SPECIFIED)
     Route: 042
     Dates: start: 20130823, end: 20130824
  4. RASBURICASE [Concomitant]
     Active Substance: RASBURICASE
  5. INVESTIGATIONAL DRUG [Suspect]
     Active Substance: INVESTIGATIONAL PRODUCT
     Indication: ACUTE MYELOID LEUKAEMIA
     Dosage: 100 MG MILLIGRAM(S), 1 DAY, ORAL
     Route: 048
     Dates: start: 20130802, end: 20130821

REACTIONS (7)
  - Tachypnoea [None]
  - Hypertension [None]
  - Tachycardia [None]
  - Metabolic acidosis [None]
  - Dyspnoea [None]
  - Hyperkalaemia [None]
  - Tumour lysis syndrome [None]

NARRATIVE: CASE EVENT DATE: 20130824
